FAERS Safety Report 5289553-1 (Version None)
Quarter: 2007Q1

REPORT INFORMATION
  Report Type: 
  Country: None (occurrence: None)
  Receive Date: 20070118
  Receipt Date: 20060929
  Transmission Date: 20070707
  Serious: Yes (Other)
  Sender: FDA-Public Use
  Company Number: HQWYE505711SEP06

PATIENT
  Age: 75 Year
  Sex: Female
  Weight: 52.21 kg

DRUGS (2)
  1. ADVIL PM [Suspect]
     Indication: INSOMNIA
     Dosage: 2 CAPLETS AT BEDTIME, ORAL
     Route: 048
     Dates: start: 20060101, end: 20060801
  2. ADVIL PM [Suspect]
     Indication: PAIN
     Dosage: 2 CAPLETS AT BEDTIME, ORAL
     Route: 048
     Dates: start: 20060101, end: 20060801

REACTIONS (1)
  - DRUG EFFECT DECREASED [None]
